FAERS Safety Report 11726747 (Version 13)
Quarter: 2017Q2

REPORT INFORMATION
  Report Type: Spontaneous
  Country: US (occurrence: US)
  Receive Date: 20151112
  Receipt Date: 20170410
  Transmission Date: 20170829
  Serious: Yes (Congenital Anomaly, Other)
  Sender: FDA-Public Use
  Company Number: PHEH2015US022859

PATIENT
  Sex: Male

DRUGS (4)
  1. ZOFRAN [Suspect]
     Active Substance: ONDANSETRON HYDROCHLORIDE
     Indication: FOETAL EXPOSURE DURING PREGNANCY
     Dosage: MOTHER^S DOSE: 8 MG, Q12H
     Route: 064
  2. ZOFRAN ODT [Suspect]
     Active Substance: ONDANSETRON HYDROCHLORIDE
     Indication: FOETAL EXPOSURE DURING PREGNANCY
     Dosage: MOTHER^S DOSE FREQUENCY: TID
     Route: 064
  3. ONDANSETRON HYDROCHLORIDE. [Suspect]
     Active Substance: ONDANSETRON HYDROCHLORIDE
     Indication: FOETAL EXPOSURE DURING PREGNANCY
     Route: 064
  4. ONDANSETRON HYDROCHLORIDE. [Suspect]
     Active Substance: ONDANSETRON HYDROCHLORIDE
     Indication: FOETAL EXPOSURE DURING PREGNANCY
     Route: 064

REACTIONS (28)
  - Hypoplastic left heart syndrome [Unknown]
  - Jaundice [Unknown]
  - Eczema [Unknown]
  - Multiple congenital abnormalities [Unknown]
  - Foetal exposure during pregnancy [Unknown]
  - Vomiting [Unknown]
  - Cardiac murmur [Unknown]
  - Pharyngitis streptococcal [Unknown]
  - Atrial septal defect [Unknown]
  - Transposition of the great vessels [Unknown]
  - Dermatitis diaper [Unknown]
  - Pyrexia [Unknown]
  - Hypoplastic right heart syndrome [Unknown]
  - Emotional distress [Unknown]
  - Gait disturbance [Unknown]
  - Sinus disorder [Unknown]
  - Diarrhoea [Unknown]
  - Anxiety [Unknown]
  - Selective eating disorder [Unknown]
  - Congenital anomaly [Unknown]
  - Ventricular septal defect [Unknown]
  - Cough [Unknown]
  - Heart disease congenital [Unknown]
  - Pain [Unknown]
  - Scar [Unknown]
  - Injury [Unknown]
  - Anhedonia [Unknown]
  - Nasal disorder [Unknown]
